FAERS Safety Report 4456437-8 (Version None)
Quarter: 2004Q3

REPORT INFORMATION
  Report Type: 
  Country: None (occurrence: None)
  Receive Date: 20040830
  Receipt Date: 20040506
  Transmission Date: 20050211
  Serious: No
  Sender: FDA-Public Use
  Company Number: 206373

PATIENT
  Age: 65 Year
  Sex: Female
  Weight: 64 kg

DRUGS (9)
  1. XOLAIR [Suspect]
     Indication: RHINITIS ALLERGIC
     Dosage: 225 MG, Q2W, SUBCUTANEOUS
     Route: 058
     Dates: start: 20040107, end: 20040428
  2. PREMARIN [Concomitant]
  3. TRIAMTERENE W HCTZ (HYDROCHLOROTHIAZIDE, TRIAMTERENE) [Concomitant]
  4. SINGULAIR [Concomitant]
  5. ZOLOFT [Concomitant]
  6. ADVAIR (SALMETEROL XINAFOATE, FLUTICASONE PROPIONATE) [Concomitant]
  7. CLARINEX [Concomitant]
  8. RHINOCORT AQUA (BUDESONIDE) [Concomitant]
  9. NEXIUM [Concomitant]

REACTIONS (3)
  - PAIN [None]
  - SINUSITIS [None]
  - URTICARIA [None]
